FAERS Safety Report 7361463 (Version 3)
Quarter: 2014Q1

REPORT INFORMATION
  Report Type: Report from Study
  Country: DE (occurrence: DE)
  Receive Date: 20100421
  Receipt Date: 20140108
  Transmission Date: 20141002
  Serious: Yes (Death)
  Sender: FDA-Public Use
  Company Number: DE-ROCHE-697951

PATIENT
  Age: 69 Year
  Sex: Female
  Weight: 85 kg

DRUGS (4)
  1. BEVACIZUMAB [Suspect]
     Indication: BREAST CANCER METASTATIC
     Dosage: APPLICATIONS ON 29-MAR-2010 AND ON 8-APR-2010
     Route: 042
     Dates: start: 20100329, end: 20100412
  2. PACLITAXEL [Concomitant]
     Indication: BREAST CANCER METASTATIC
     Route: 042
     Dates: start: 20100329, end: 20100412
  3. BISOPROLOL [Concomitant]
     Route: 065
     Dates: start: 2000
  4. RAMIPRIL [Concomitant]
     Route: 065
     Dates: start: 2000

REACTIONS (1)
  - Death [Fatal]
